FAERS Safety Report 25524936 (Version 1)
Quarter: 2025Q3

REPORT INFORMATION
  Report Type: Spontaneous
  Country: CA (occurrence: CA)
  Receive Date: 20250707
  Receipt Date: 20250707
  Transmission Date: 20251021
  Serious: Yes (Death, Disabling, Other)
  Sender: SANOFI AVENTIS
  Company Number: CA-SA-2025SA189245

PATIENT
  Age: 67 Year
  Sex: Female

DRUGS (6)
  1. KEVZARA [Suspect]
     Active Substance: SARILUMAB
     Indication: Rheumatoid arthritis
     Route: 058
  2. KEVZARA [Suspect]
     Active Substance: SARILUMAB
     Route: 058
  3. COVID-19 VACCINE NOS [Suspect]
     Active Substance: COVID-19 VACCINE
     Indication: COVID-19 immunisation
  4. BUDESONIDE\FORMOTEROL FUMARATE [Concomitant]
     Active Substance: BUDESONIDE\FORMOTEROL FUMARATE
  5. METHOTREXATE [Concomitant]
     Active Substance: METHOTREXATE
  6. VENTOLIN [Concomitant]
     Active Substance: ALBUTEROL SULFATE

REACTIONS (24)
  - Aortic dilatation [Fatal]
  - Insomnia [Fatal]
  - Aortic dissection rupture [Fatal]
  - Cardiac disorder [Fatal]
  - Cough [Fatal]
  - Dyspnoea [Fatal]
  - Gait disturbance [Fatal]
  - Joint stiffness [Fatal]
  - Limb discomfort [Fatal]
  - Loss of personal independence in daily activities [Fatal]
  - Lung neoplasm malignant [Fatal]
  - Movement disorder [Fatal]
  - Myalgia [Fatal]
  - Nodule [Fatal]
  - Pain in extremity [Fatal]
  - Peripheral swelling [Fatal]
  - Pulmonary mass [Fatal]
  - Rheumatoid arthritis [Fatal]
  - Sleep apnoea syndrome [Fatal]
  - Pain [Fatal]
  - Intentional dose omission [Fatal]
  - Pneumonia [Fatal]
  - Gastroenteritis [Fatal]
  - Nasopharyngitis [Fatal]
